FAERS Safety Report 5267668-1 (Version None)
Quarter: 2007Q1

REPORT INFORMATION
  Report Type: 
  Country: None (occurrence: None)
  Receive Date: 20070316
  Receipt Date: 20070306
  Transmission Date: 20070707
  Serious: Yes (Other)
  Sender: FDA-Public Use
  Company Number: FR-PFIZER INC-2007007403

PATIENT
  Sex: Male
  Weight: 95 kg

DRUGS (7)
  1. LYRICA [Suspect]
     Indication: NEURALGIA
     Route: 048
     Dates: start: 20061201, end: 20061220
  2. TAHOR [Concomitant]
     Indication: HYPERCHOLESTEROLAEMIA
     Route: 048
  3. COAPROVEL [Concomitant]
     Indication: HYPERTENSION
     Route: 048
  4. STRUCTUM [Concomitant]
  5. EUPANTOL [Concomitant]
  6. ZAMADOL [Concomitant]
     Indication: PAIN
     Route: 048
  7. HAMAMELIS VIRGINIANA [Concomitant]
     Route: 048

REACTIONS (3)
  - LOSS OF CONSCIOUSNESS [None]
  - MALAISE [None]
  - ROAD TRAFFIC ACCIDENT [None]
